FAERS Safety Report 5446199-X (Version None)
Quarter: 2007Q3

REPORT INFORMATION
  Report Type: 
  Country: None (occurrence: None)
  Receive Date: 20070731
  Receipt Date: 20070201
  Transmission Date: 20080115
  Serious: Yes (Other)
  Sender: FDA-Public Use
  Company Number: US-2007-003712

PATIENT
  Age: 73 Year
  Sex: Male
  Weight: 72 kg

DRUGS (4)
  1. MAGNEVIST [Suspect]
     Indication: NUCLEAR MAGNETIC RESONANCE IMAGING BRAIN
     Dosage: 1 DOSE, INTRAVENOUS
     Route: 042
     Dates: start: 20060101, end: 20060101
  2. CHOLESTEROL- AND TRIGLYCERIDES REDUCERS [Concomitant]
  3. LIPITOR [Concomitant]
  4. LEVOXYL [Concomitant]

REACTIONS (1)
  - BLOOD CREATININE INCREASED [None]
